FAERS Safety Report 6570375-6 (Version None)
Quarter: 2010Q1

REPORT INFORMATION
  Report Type: 
  Country: None (occurrence: None)
  Receive Date: 20100204
  Receipt Date: 20100128
  Transmission Date: 20100710
  Serious: Yes (Hospitalization)
  Sender: FDA-Public Use
  Company Number: IT-B.I. PHARMACEUTICALS,INC./RIDGEFIELD-2010-DE-00494GD

PATIENT
  Age: 65 Year
  Sex: Male

DRUGS (3)
  1. NEVIRAPINE [Suspect]
     Indication: HIV INFECTION
     Dates: end: 20080501
  2. LAMIVUDINE [Suspect]
     Indication: HIV INFECTION
     Dates: end: 20080501
  3. DIDANOSINE [Suspect]
     Indication: HIV INFECTION
     Dates: end: 20080501

REACTIONS (7)
  - ABDOMINAL WALL HAEMATOMA [None]
  - ANAEMIA [None]
  - ANTI FACTOR VIII ANTIBODY POSITIVE [None]
  - COAGULOPATHY [None]
  - ECCHYMOSIS [None]
  - HAEMATURIA [None]
  - MUSCLE HAEMORRHAGE [None]
